FAERS Safety Report 13122496 (Version 1)
Quarter: 2017Q1

REPORT INFORMATION
  Report Type: Spontaneous
  Country: US (occurrence: US)
  Receive Date: 20170117
  Receipt Date: 20170117
  Transmission Date: 20170428
  Serious: No
  Sender: FDA-Public Use
  Company Number: US-ALLERGAN-1676754US

PATIENT
  Age: 86 Year
  Sex: Male
  Weight: 78.91 kg

DRUGS (4)
  1. NAMZARIC [Suspect]
     Active Substance: DONEPEZIL HYDROCHLORIDE\MEMANTINE HYDROCHLORIDE
     Indication: DEMENTIA
     Dosage: UNK
     Route: 065
     Dates: start: 20161106, end: 201611
  2. POTASSIUM [Concomitant]
     Active Substance: POTASSIUM
     Indication: PRODUCT USED FOR UNKNOWN INDICATION
     Dosage: UNK
     Route: 065
  3. TOVIAZ [Concomitant]
     Active Substance: FESOTERODINE FUMARATE
     Indication: HYPERTONIC BLADDER
     Dosage: 4 MG, UNK
     Route: 065
  4. AMLODIPINE [Concomitant]
     Active Substance: AMLODIPINE BESYLATE
     Indication: HYPERTENSION
     Dosage: 10 MG, QD
     Route: 065

REACTIONS (1)
  - Enuresis [Recovered/Resolved]

NARRATIVE: CASE EVENT DATE: 201611
